FAERS Safety Report 9478099 (Version 2)
Quarter: 2015Q2

REPORT INFORMATION
  Report Type: Spontaneous
  Country: US (occurrence: US)
  Receive Date: 20130827
  Receipt Date: 20150601
  Transmission Date: 20150821
  Serious: Yes (Hospitalization, Other)
  Sender: FDA-Public Use
  Company Number: US-BAYER-2013-102940

PATIENT
  Age: 38 Year
  Sex: Female
  Weight: 51.25 kg

DRUGS (12)
  1. GIANVI [Suspect]
     Active Substance: DROSPIRENONE\ETHINYL ESTRADIOL
     Dosage: UNK
     Dates: start: 200912, end: 20100405
  2. PREDNISONE. [Concomitant]
     Active Substance: PREDNISONE
     Indication: RHEUMATOID ARTHRITIS
  3. ALPRAZOLAM. [Concomitant]
     Active Substance: ALPRAZOLAM
  4. FOLIC ACID. [Concomitant]
     Active Substance: FOLIC ACID
  5. METHOTREXATE [Concomitant]
     Active Substance: METHOTREXATE
     Indication: RHEUMATOID ARTHRITIS
  6. ENBREL [Concomitant]
     Active Substance: ETANERCEPT
  7. YAZ [Suspect]
     Active Substance: DROSPIRENONE\ETHINYL ESTRADIOL
     Dosage: UNK
     Dates: start: 200912, end: 20100405
  8. YASMIN [Suspect]
     Active Substance: DROSPIRENONE\ETHINYL ESTRADIOL
     Dosage: UNK
     Dates: start: 200912, end: 20100405
  9. OCELLA [Suspect]
     Active Substance: DROSPIRENONE\ETHINYL ESTRADIOL
     Dosage: UNK
     Dates: start: 200912, end: 20100405
  10. REMERON [Concomitant]
     Active Substance: MIRTAZAPINE
  11. CHANTIX [Concomitant]
     Active Substance: VARENICLINE TARTRATE
  12. ADDERALL [Concomitant]
     Active Substance: AMPHETAMINE ASPARTATE\AMPHETAMINE SULFATE\DEXTROAMPHETAMINE SACCHARATE\DEXTROAMPHETAMINE SULFATE

REACTIONS (5)
  - Pain [None]
  - Cerebrovascular accident [None]
  - Transient ischaemic attack [None]
  - Injury [None]
  - Emotional distress [None]

NARRATIVE: CASE EVENT DATE: 20100405
